FAERS Safety Report 17383989 (Version 1)
Quarter: 2020Q1

REPORT INFORMATION
  Report Type: Spontaneous
  Country: US (occurrence: US)
  Receive Date: 20200206
  Receipt Date: 20200206
  Transmission Date: 20200409
  Serious: No
  Sender: FDA-Public Use
  Company Number: US-ABBVIE-19K-163-2870271-00

PATIENT
  Age: 76 Year
  Sex: Female

DRUGS (1)
  1. HUMIRA [Suspect]
     Active Substance: ADALIMUMAB
     Indication: COLITIS ULCERATIVE
     Route: 058
     Dates: start: 201809

REACTIONS (6)
  - Papule [Recovering/Resolving]
  - Pruritus [Unknown]
  - Skin discolouration [Recovering/Resolving]
  - Erythema [Unknown]
  - Rash papular [Recovering/Resolving]
  - Cough [Unknown]

NARRATIVE: CASE EVENT DATE: 201907
